FAERS Safety Report 4460785-5 (Version None)
Quarter: 2004Q3

REPORT INFORMATION
  Report Type: 
  Country: None (occurrence: None)
  Receive Date: 20040928
  Receipt Date: 20040804
  Transmission Date: 20050211
  Serious: No
  Sender: FDA-Public Use
  Company Number: US-GLAXOSMITHKLINE-A0520954A

PATIENT
  Age: 35 Year
  Sex: Female

DRUGS (8)
  1. ADVAIR DISKUS 100/50 [Suspect]
     Indication: ASTHMA
     Dosage: 1PUFF TWICE PER DAY
     Route: 055
  2. LEVOXYL [Concomitant]
  3. PRILOSEC [Concomitant]
  4. FLONASE [Concomitant]
  5. CLARINEX [Concomitant]
  6. DETROL [Concomitant]
  7. LOESTRIN 1.5/30 [Concomitant]
  8. MINOCYCLINE HCL [Concomitant]

REACTIONS (5)
  - ANXIETY [None]
  - DEPRESSION [None]
  - FATIGUE [None]
  - MOUTH ULCERATION [None]
  - MUSCULAR WEAKNESS [None]
